FAERS Safety Report 9176763 (Version 1)
Quarter: 2013Q1

REPORT INFORMATION
  Report Type: Report from Study
  Country: FR (occurrence: FR)
  Receive Date: 20130321
  Receipt Date: 20130321
  Transmission Date: 20140127
  Serious: Yes (Hospitalization)
  Sender: FDA-Public Use
  Company Number: PHHY2013FR027019

PATIENT
  Age: 62 Year
  Sex: Male
  Weight: 65 kg

DRUGS (6)
  1. AMN107 [Suspect]
     Indication: CHRONIC MYELOID LEUKAEMIA
     Dosage: 300 MG, BID
     Dates: start: 20130227
  2. DIAMICRON [Concomitant]
     Indication: DIABETES MELLITUS
     Dosage: 1 DF/DAY
     Route: 048
  3. VALSARTAN [Concomitant]
     Indication: HYPERTENSION
     Dosage: 1 DF/DAY
     Route: 048
  4. PLAVIX [Concomitant]
     Indication: MYOCARDIAL INFARCTION
     Dosage: 1 DF/DAILY
     Route: 048
     Dates: start: 2005, end: 2005
  5. INEGY [Concomitant]
     Indication: HYPERCHOLESTEROLAEMIA
     Dosage: 1 DF/DAILY
     Route: 048
  6. ASPIRIN [Concomitant]
     Indication: HEADACHE
     Dosage: 100 MG, BID
     Dates: start: 20130228, end: 20130228

REACTIONS (1)
  - Gastrointestinal haemorrhage [Recovered/Resolved]
